FAERS Safety Report 9228867 (Version 1)
Quarter: 2013Q2

REPORT INFORMATION
  Report Type: Spontaneous
  Country: US (occurrence: US)
  Receive Date: 20130412
  Receipt Date: 20130412
  Transmission Date: 20140414
  Serious: Yes (Other)
  Sender: FDA-Public Use
  Company Number: US-PFIZER INC-2013114996

PATIENT
  Age: 22 Year
  Sex: Male
  Weight: 65.76 kg

DRUGS (1)
  1. PREPARATION H [Suspect]
     Indication: HAEMORRHOIDS
     Dosage: UNK
     Dates: start: 20130408

REACTIONS (1)
  - Haemorrhage [Not Recovered/Not Resolved]
